FAERS Safety Report 17091691 (Version 2)
Quarter: 2019Q4

REPORT INFORMATION
  Report Type: Spontaneous
  Country: US (occurrence: US)
  Receive Date: 20191129
  Receipt Date: 20191226
  Transmission Date: 20200122
  Serious: Yes (Hospitalization, Other)
  Sender: FDA-Public Use
  Company Number: US-GLAXOSMITHKLINE-US2019AMR211814

PATIENT
  Age: 52 Year
  Sex: Female

DRUGS (1)
  1. TRELEGY ELLIPTA [Suspect]
     Active Substance: FLUTICASONE FUROATE\UMECLIDINIUM BROMIDE\VILANTEROL TRIFENATATE
     Indication: PRODUCT USED FOR UNKNOWN INDICATION
     Dosage: UNK (100/62.5/25 MCG)
     Route: 065
     Dates: start: 2018

REACTIONS (11)
  - Colitis [Unknown]
  - Acute respiratory failure [Unknown]
  - Asthma [Unknown]
  - Foot operation [Unknown]
  - Urinary tract infection [Unknown]
  - Gastrointestinal haemorrhage [Unknown]
  - Diverticulitis [Unknown]
  - Bronchiectasis [Unknown]
  - Abdominal pain [Unknown]
  - Hysterectomy [Unknown]
  - Colonoscopy [Unknown]

NARRATIVE: CASE EVENT DATE: 20190205
